FAERS Safety Report 9383118 (Version 1)
Quarter: 2013Q3

REPORT INFORMATION
  Report Type: Spontaneous
  Country: US (occurrence: US)
  Receive Date: 20130704
  Receipt Date: 20130704
  Transmission Date: 20140515
  Serious: Yes (Other)
  Sender: FDA-Public Use
  Company Number: US-JNJFOC-20130618555

PATIENT
  Age: 34 Year
  Sex: Male

DRUGS (2)
  1. INVEGA SUSTENNA [Suspect]
     Indication: PRODUCT USED FOR UNKNOWN INDICATION
     Route: 030
  2. BROMOCRIPTINE [Concomitant]
     Route: 065

REACTIONS (2)
  - Pituitary tumour [Unknown]
  - Psychosexual disorder [Unknown]
